FAERS Safety Report 18558892 (Version 2)
Quarter: 2020Q4

REPORT INFORMATION
  Report Type: Spontaneous
  Country: US (occurrence: US)
  Receive Date: 20201130
  Receipt Date: 20201202
  Transmission Date: 20210114
  Serious: Yes (Other)
  Sender: FDA-Public Use
  Company Number: US-HIKMA PHARMACEUTICALS USA INC.-US-H14001-20-05392

PATIENT
  Age: 32 Year
  Sex: Female

DRUGS (1)
  1. INFUMORPH [Suspect]
     Active Substance: MORPHINE SULFATE
     Indication: SPINAL PAIN
     Route: 037

REACTIONS (4)
  - Pain [Unknown]
  - Nervous system disorder [Unknown]
  - Cerebrospinal fluid leakage [Unknown]
  - Hallucination [Unknown]

NARRATIVE: CASE EVENT DATE: 20201119
